FAERS Safety Report 20738400 (Version 1)
Quarter: 2022Q2

REPORT INFORMATION
  Report Type: Report from Study
  Country: JP (occurrence: JP)
  Receive Date: 20220422
  Receipt Date: 20220422
  Transmission Date: 20220721
  Serious: Yes (Other)
  Sender: FDA-Public Use
  Company Number: JP-ORPHANEU-2022001063

PATIENT

DRUGS (8)
  1. CARBAGLU [Suspect]
     Active Substance: CARGLUMIC ACID
     Indication: Methylmalonic aciduria
     Dosage: 150 MILLIGRAM, QID,  SYRINGE FOR ORAL ADMINISTRATION AND NASOGASTRIC TUBE
     Dates: start: 20190608, end: 20190629
  2. CARBAGLU [Suspect]
     Active Substance: CARGLUMIC ACID
     Dosage: 200 MILLIGRAM, TID, SYRINGE FOR ORAL ADMINISTRATION AND NASOGASTRIC TUBE
     Dates: start: 20190712, end: 20190809
  3. CARBAGLU [Suspect]
     Active Substance: CARGLUMIC ACID
     Dosage: 130 MILLIGRAM, 5 TIMES
     Route: 048
     Dates: start: 20190920, end: 20191020
  4. LEVOCARNITINE HYDROCHLORIDE [Concomitant]
     Active Substance: LEVOCARNITINE HYDROCHLORIDE
     Indication: Methylmalonic aciduria
     Dosage: 500 MILLIGRAM, DAILY
     Route: 048
  5. VITAMEDIN [BENFOTIAMINE;CYANOCOBALAMIN;PYRIDOXINE HYDROCHLORIDE] [Concomitant]
     Indication: Methylmalonic aciduria
     Dosage: 2 DOSAGE FORM, DAILY
     Route: 048
     Dates: end: 20190622
  6. HYCOBAL [COBAMAMIDE] [Concomitant]
     Indication: Methylmalonic aciduria
     Dosage: 2 DOSAGE FORM, DAILY
     Route: 048
     Dates: start: 20190622
  7. LACTULOSE [Concomitant]
     Active Substance: LACTULOSE
     Indication: Methylmalonic aciduria
     Dosage: 3 MILLILITER, DAILY
     Route: 048
     Dates: start: 2019
  8. SODIUM BENZOATE [Concomitant]
     Active Substance: SODIUM BENZOATE
     Indication: Methylmalonic aciduria
     Dosage: 200 MILLIGRAM/KILOGRAM, DAILY
     Route: 048
     Dates: start: 20190706, end: 20191020

REACTIONS (2)
  - Hyperkalaemia [Not Recovered/Not Resolved]
  - Drug ineffective [Recovered/Resolved]

NARRATIVE: CASE EVENT DATE: 20190610
